FAERS Safety Report 5472331-8 (Version None)
Quarter: 2007Q3

REPORT INFORMATION
  Report Type: 
  Country: None (occurrence: None)
  Receive Date: 20070927
  Receipt Date: 20070919
  Transmission Date: 20080115
  Serious: Yes (Other)
  Sender: FDA-Public Use
  Company Number: 2007SP017678

PATIENT
  Age: 51 Year
  Sex: Female
  Weight: 79.8331 kg

DRUGS (7)
  1. PEG-INTRON [Suspect]
     Indication: HEPATITIS C
     Dosage: 120 MCG; QW; SC
     Route: 058
     Dates: start: 20070814, end: 20070910
  2. REBETOL [Suspect]
     Indication: HEPATITIS C
     Dosage: 1000 MG; PO
     Route: 048
     Dates: start: 20070814, end: 20070910
  3. ANTIHYPERTENSIVES [Concomitant]
  4. LORCET [Concomitant]
  5. PROCARDIA [Concomitant]
  6. XANAX [Concomitant]
  7. ALBUTEROL [Concomitant]

REACTIONS (11)
  - ANOREXIA [None]
  - ASTHENIA [None]
  - BLOOD POTASSIUM DECREASED [None]
  - BLOOD PRESSURE DECREASED [None]
  - CHAPPED LIPS [None]
  - CHEST PAIN [None]
  - GLOSSODYNIA [None]
  - MUSCLE SPASMS [None]
  - NECK PAIN [None]
  - PAIN [None]
  - PYREXIA [None]
